FAERS Safety Report 8793781 (Version 1)
Quarter: 2012Q4

REPORT INFORMATION
  Report Type: 
  Country: NO (occurrence: NO)
  Receive Date: 20120918
  Receipt Date: 20120918
  Transmission Date: 20130627
  Serious: Yes (Other)
  Sender: FDA-Public Use
  Company Number: NO-BAYER-2012-093523

PATIENT
  Age: 37 Year
  Sex: Female

DRUGS (2)
  1. MIRENA [Suspect]
     Indication: CONTRACEPTION
     Dosage: UNK
     Dates: start: 2007, end: 20120831
  2. MIRENA [Suspect]
     Indication: MENORRHAGIA
     Dosage: UNK
     Dates: start: 20120831, end: 20120831

REACTIONS (6)
  - Cervical dysplasia [Recovered/Resolved]
  - Amenorrhoea [None]
  - Menorrhagia [None]
  - Uterine leiomyoma [None]
  - Complication of device removal [None]
  - Device difficult to use [None]
